FAERS Safety Report 7077427-5 (Version None)
Quarter: 2010Q4

REPORT INFORMATION
  Report Type: 
  Country: None (occurrence: None)
  Receive Date: 20101101
  Receipt Date: 20101018
  Transmission Date: 20110411
  Serious: Yes (Other)
  Sender: FDA-Public Use
  Company Number: US-AMGEN-USASP2010000722

PATIENT

DRUGS (1)
  1. ENBREL [Suspect]
     Indication: RHEUMATOID ARTHRITIS
     Dosage: 50 MG, QWK
     Dates: start: 20101015

REACTIONS (9)
  - COUGH [None]
  - DECREASED APPETITE [None]
  - DYSPHAGIA [None]
  - DYSPHONIA [None]
  - FEELING OF RELAXATION [None]
  - HALLUCINATION, AUDITORY [None]
  - HEART RATE INCREASED [None]
  - LYMPHADENOPATHY [None]
  - THROAT TIGHTNESS [None]
